FAERS Safety Report 10957669 (Version 2)
Quarter: 2016Q2

REPORT INFORMATION
  Report Type: Spontaneous
  Country: US (occurrence: US)
  Receive Date: 20150326
  Receipt Date: 20160623
  Transmission Date: 20160815
  Serious: Yes (Other)
  Sender: FDA-Public Use
  Company Number: US-TEVA-550206USA

PATIENT
  Age: 33 Year
  Sex: Female

DRUGS (1)
  1. PARAGARD T 380A [Suspect]
     Active Substance: COPPER
     Indication: CONTRACEPTION
     Route: 015
     Dates: start: 20110327, end: 20150307

REACTIONS (6)
  - Live birth [Recovered/Resolved]
  - Pregnancy with contraceptive device [Recovered/Resolved]
  - Umbilical cord abnormality [Recovered/Resolved]
  - Uterine dilation and curettage [Recovered/Resolved]
  - Female sterilisation [Recovered/Resolved]
  - Complication of pregnancy [Recovered/Resolved]

NARRATIVE: CASE EVENT DATE: 20150303
